FAERS Safety Report 5773242-0 (Version None)
Quarter: 2008Q2

REPORT INFORMATION
  Report Type: 
  Country: None (occurrence: None)
  Receive Date: 20080601
  Receipt Date: 20080222
  Transmission Date: 20081010
  Serious: No
  Sender: FDA-Public Use
  Company Number: US200802005402

PATIENT
  Age: 60 Year
  Sex: Female
  Weight: 117.9 kg

DRUGS (10)
  1. BYETTA [Suspect]
     Indication: DIABETES MELLITUS
     Dosage: 5 UG, 2/D, SUBCUTANEOUS
     Route: 058
     Dates: start: 20080108
  2. GLUCOPHAGE [Concomitant]
  3. PRANDIN (DEFLAZACORT) [Concomitant]
  4. MICARDIS [Concomitant]
  5. ZOCOR [Concomitant]
  6. ANTIHYPERTENSIVES [Concomitant]
  7. METOCLOPRAMIDE [Concomitant]
  8. DETROL [Concomitant]
  9. CALCIUM (CALCIUM) [Concomitant]
  10. INSULIN (INSULIN) [Concomitant]

REACTIONS (3)
  - HYPERGLYCAEMIA [None]
  - VISUAL DISTURBANCE [None]
  - WEIGHT DECREASED [None]
